FAERS Safety Report 7734729-4 (Version None)
Quarter: 2011Q3

REPORT INFORMATION
  Report Type: 
  Country: None (occurrence: None)
  Receive Date: 20110907
  Receipt Date: 20110830
  Transmission Date: 20111222
  Serious: Yes (Life-Threatening)
  Sender: FDA-Public Use
  Company Number: JP-ACTELION-A-CH2010-39742

PATIENT
  Sex: Female
  Weight: 34 kg

DRUGS (12)
  1. CEFOTIAM HYDROCHLORIDE [Suspect]
     Indication: VAGINITIS BACTERIAL
     Dosage: UNK
     Dates: start: 20100906, end: 20100910
  2. CARBOCISTEINE [Concomitant]
  3. REBAMIPIDE [Concomitant]
  4. MAGNESIUM OXIDE [Concomitant]
  5. DOPAMINE HCL [Concomitant]
  6. EPOPROSTENOL SODIUM [Concomitant]
     Dosage: UNK
     Dates: start: 20100906
  7. TRACLEER [Suspect]
     Indication: PULMONARY ARTERIAL HYPERTENSION
     Dosage: 31.25 MG, BID
     Route: 048
     Dates: start: 20100906, end: 20100913
  8. TRACLEER [Suspect]
     Dosage: 62.5 MG, QD
     Route: 048
     Dates: start: 20100930, end: 20101002
  9. TORSEMIDE [Suspect]
     Dosage: UNK
     Dates: start: 20100907, end: 20100913
  10. BERAPROST SODIUM [Concomitant]
  11. DOBUTAMINE HCL [Concomitant]
  12. PIPERACILLIN AND TAZOBACTAM [Concomitant]

REACTIONS (6)
  - VENTRICULAR TACHYCARDIA [None]
  - VENTRICULAR EXTRASYSTOLES [None]
  - NERVOUSNESS [None]
  - ELECTROCARDIOGRAM QT PROLONGED [None]
  - HEPATIC FUNCTION ABNORMAL [None]
  - TORSADE DE POINTES [None]
